FAERS Safety Report 25440199 (Version 2)
Quarter: 2025Q3

REPORT INFORMATION
  Report Type: Spontaneous
  Country: JP (occurrence: JP)
  Receive Date: 20250616
  Receipt Date: 20250711
  Transmission Date: 20251020
  Serious: Yes (Hospitalization)
  Sender: GUERBET
  Company Number: JP-GUERBETG-JP-20250107

PATIENT
  Age: 57 Year
  Sex: Male

DRUGS (1)
  1. OPTIRAY 350 [Suspect]
     Active Substance: IOVERSOL
     Indication: Computerised tomogram liver
     Route: 042
     Dates: start: 20250605, end: 20250605

REACTIONS (3)
  - Pruritus [Recovered/Resolved]
  - Eye symptom [Recovered/Resolved]
  - Blood pressure decreased [Unknown]

NARRATIVE: CASE EVENT DATE: 20250605
